FAERS Safety Report 15929725 (Version 1)
Quarter: 2019Q1

REPORT INFORMATION
  Report Type: Spontaneous
  Country: GB (occurrence: FR)
  Receive Date: 20190206
  Receipt Date: 20190206
  Transmission Date: 20190417
  Serious: Yes (Hospitalization)
  Sender: FDA-Public Use
  Company Number: FR-FRESENIUS KABI-FK201901263

PATIENT
  Age: 19 Year
  Sex: Male
  Weight: 58 kg

DRUGS (3)
  1. CEFOTAXIME SODIUM [Suspect]
     Active Substance: CEFOTAXIME SODIUM
     Indication: LEMIERRE SYNDROME
     Route: 042
     Dates: start: 20181226, end: 20190105
  2. METRONIDAZOLE. [Suspect]
     Active Substance: METRONIDAZOLE
     Indication: LEMIERRE SYNDROME
     Route: 042
     Dates: start: 20181226, end: 20190105
  3. CLINDAMYCIN. [Suspect]
     Active Substance: CLINDAMYCIN
     Indication: LEMIERRE SYNDROME
     Route: 042
     Dates: start: 20181226, end: 20190105

REACTIONS (1)
  - Toxic skin eruption [Recovering/Resolving]

NARRATIVE: CASE EVENT DATE: 20190105
